FAERS Safety Report 10238746 (Version 2)
Quarter: 2014Q4

REPORT INFORMATION
  Report Type: Spontaneous
  Country: US (occurrence: None)
  Receive Date: 20140612
  Receipt Date: 20141105
  Transmission Date: 20150528
  Serious: Yes (Death, Hospitalization)
  Sender: FDA-Public Use
  Company Number: UNT-2014-001537

PATIENT
  Age: 86 Year
  Sex: Female
  Weight: 28.6 kg

DRUGS (3)
  1. TYVASO [Suspect]
     Active Substance: TREPROSTINIL
     Indication: COR PULMONALE CHRONIC
     Route: 055
     Dates: start: 20120531
  2. REMODULIN [Suspect]
     Active Substance: TREPROSTINIL
     Indication: PRODUCT USED FOR UNKNOWN INDICATION
     Route: 041
     Dates: start: 201405
  3. REVATIO (SILDENAFIL CITRATE) [Concomitant]

REACTIONS (4)
  - Shunt malfunction [None]
  - Hypotension [None]
  - Pulmonary arterial hypertension [None]
  - Hypoxia [None]

NARRATIVE: CASE EVENT DATE: 201405
